FAERS Safety Report 6503961-X (Version None)
Quarter: 2009Q4

REPORT INFORMATION
  Report Type: 
  Country: None (occurrence: None)
  Receive Date: 20091217
  Receipt Date: 20091214
  Transmission Date: 20100525
  Serious: Yes (Death)
  Sender: FDA-Public Use
  Company Number: JP-ELI_LILLY_AND_COMPANY-JP200907006299

PATIENT
  Sex: Male
  Weight: 63 kg

DRUGS (9)
  1. GEMZAR [Suspect]
     Indication: LUNG SQUAMOUS CELL CARCINOMA STAGE IV
     Dosage: 1700 MG, UNK
     Route: 042
     Dates: start: 20090707
  2. TAXOTERE [Concomitant]
     Indication: LUNG SQUAMOUS CELL CARCINOMA STAGE IV
     Dosage: 100 MG, UNK
     Route: 042
     Dates: start: 20090611, end: 20090611
  3. ENALAPRIL /00574902/ [Concomitant]
     Indication: HYPERTENSION
     Dosage: 5 MG, DAILY (1/D)
     Route: 048
     Dates: end: 20090707
  4. PARIET [Concomitant]
     Indication: REFLUX OESOPHAGITIS
     Dosage: 10 MG, DAILY (1/D)
     Route: 048
     Dates: end: 20090707
  5. MAGMITT [Concomitant]
     Indication: CONSTIPATION
     Dosage: 330 MG, 3/D
     Route: 048
     Dates: start: 20090604, end: 20090707
  6. MEDICON /00048102/ [Concomitant]
     Indication: ANTITUSSIVE THERAPY
     Dosage: 20 MG, 3/D
     Route: 048
     Dates: start: 20090625, end: 20090707
  7. NAIXAN [Concomitant]
     Indication: PYREXIA
     Dosage: 100 MG, 3/D
     Route: 048
     Dates: start: 20090619, end: 20090707
  8. FRANDOL [Concomitant]
     Indication: ANGINA PECTORIS
     Dosage: 40 MG, DAILY (1/D)
     Route: 062
     Dates: start: 20090612, end: 20090707
  9. CODEINE PHOSPHATE [Concomitant]
     Indication: ANTITUSSIVE THERAPY
     Dosage: 20 MG, AS NEEDED
     Route: 048
     Dates: start: 20090625

REACTIONS (1)
  - MYOCARDIAL INFARCTION [None]
